FAERS Safety Report 7048076-X (Version None)
Quarter: 2010Q4

REPORT INFORMATION
  Report Type: 
  Country: None (occurrence: None)
  Receive Date: 20101015
  Receipt Date: 20101007
  Transmission Date: 20110411
  Serious: Yes (Hospitalization)
  Sender: FDA-Public Use
  Company Number: B0679396A

PATIENT
  Sex: Female

DRUGS (10)
  1. AUGMENTIN '125' [Suspect]
     Indication: PNEUMONIA
     Dates: start: 20100917, end: 20100917
  2. OMEPRAZOLE [Concomitant]
     Dosage: 20MG PER DAY
  3. ATENOLOL [Concomitant]
     Dosage: 50MG PER DAY
  4. LOSARTAN [Concomitant]
     Dosage: 50MG PER DAY
  5. ACETYLSALICYLZUUR CARDIO [Concomitant]
     Dosage: 80MG PER DAY
  6. SIMVASTATIN [Concomitant]
     Dosage: 20MG PER DAY
  7. OXAZEPAM [Concomitant]
     Dosage: 10MG PER DAY
  8. PREDNISOLON [Concomitant]
     Dosage: 20MG PER DAY
  9. SERETIDE [Concomitant]
  10. VENTOLIN [Concomitant]

REACTIONS (2)
  - ANAPHYLACTIC REACTION [None]
  - TONGUE DISCOLOURATION [None]
